FAERS Safety Report 4614132-6 (Version None)
Quarter: 2005Q1

REPORT INFORMATION
  Report Type: 
  Country: None (occurrence: None)
  Receive Date: 20050316
  Receipt Date: 20050302
  Transmission Date: 20050727
  Serious: Yes (Death, Hospitalization, Other)
  Sender: FDA-Public Use
  Company Number: JP_030801502

PATIENT
  Age: 71 Year
  Sex: Female

DRUGS (6)
  1. GEMZAR [Suspect]
     Indication: SARCOMA UTERUS
     Dosage: 800 MG/M2 OTHER
  2. TAXOTERE [Concomitant]
  3. DEXAMETHASONE [Concomitant]
  4. GRANISETRON [Concomitant]
  5. METOCLOPRAMIDE [Concomitant]
  6. HS BLOCKER ^RATIOPHARM^ (CIMETIDINE HYDROCHLORIDE) [Concomitant]

REACTIONS (15)
  - ACTIVITIES OF DAILY LIVING IMPAIRED [None]
  - CYST [None]
  - DISEASE PROGRESSION [None]
  - DISEASE RECURRENCE [None]
  - GENERAL PHYSICAL HEALTH DETERIORATION [None]
  - MALIGNANT NEOPLASM PROGRESSION [None]
  - METASTASES TO BONE [None]
  - METASTASES TO CENTRAL NERVOUS SYSTEM [None]
  - METASTASES TO LYMPH NODES [None]
  - NAUSEA [None]
  - NEUTROPENIA [None]
  - OXYGEN SATURATION DECREASED [None]
  - PAIN [None]
  - PYREXIA [None]
  - VOMITING [None]
